FAERS Safety Report 11722404 (Version 1)
Quarter: 2015Q4

REPORT INFORMATION
  Report Type: Spontaneous
  Country: TW (occurrence: TW)
  Receive Date: 20151111
  Receipt Date: 20151111
  Transmission Date: 20160304
  Serious: Yes (Other)
  Sender: FDA-Public Use
  Company Number: TW-ACTAVIS-2015-19890

PATIENT
  Age: 64 Year
  Sex: Male

DRUGS (4)
  1. CISPLATIN (UNKNOWN) [Suspect]
     Active Substance: CISPLATIN
     Indication: ANAPLASTIC THYROID CANCER
     Dosage: 60 MG/M2, CYCLICAL
     Route: 065
     Dates: start: 20130906
  2. CISPLATIN (UNKNOWN) [Suspect]
     Active Substance: CISPLATIN
     Dosage: UNK
     Route: 065
     Dates: start: 20131005
  3. DOXORUBICIN (UNKNOWN) [Suspect]
     Active Substance: DOXORUBICIN
     Indication: ANAPLASTIC THYROID CANCER
     Dosage: 60 MG/M2, CYCLICAL
     Route: 065
     Dates: start: 20130906
  4. DOXORUBICIN (UNKNOWN) [Suspect]
     Active Substance: DOXORUBICIN
     Dosage: UNK
     Route: 065
     Dates: start: 20131005

REACTIONS (1)
  - Febrile neutropenia [Recovered/Resolved]
